FAERS Safety Report 6085948-7 (Version None)
Quarter: 2009Q1

REPORT INFORMATION
  Report Type: 
  Country: None (occurrence: None)
  Receive Date: 20090220
  Receipt Date: 20090213
  Transmission Date: 20090719
  Serious: Yes (Other)
  Sender: FDA-Public Use
  Company Number: US-ELI_LILLY_AND_COMPANY-US200902003534

PATIENT
  Sex: Female

DRUGS (8)
  1. PROZAC [Suspect]
     Indication: DEPRESSION
     Dosage: UNK, UNKNOWN
     Route: 065
     Dates: start: 19930101, end: 19960101
  2. PROZAC [Suspect]
     Dosage: UNK, UNKNOWN
     Route: 065
     Dates: start: 19960101, end: 20090211
  3. TOPAMAX [Concomitant]
     Dosage: UNK, UNKNOWN
     Route: 065
  4. VALIUM [Concomitant]
     Dosage: UNK, UNKNOWN
     Route: 065
  5. ABILIFY [Concomitant]
     Dosage: UNK, UNKNOWN
     Route: 065
  6. VISTARIL [Concomitant]
     Dosage: UNK, UNKNOWN
     Route: 065
  7. SEROQUEL [Concomitant]
     Dosage: 200 MG, EACH EVENING
     Route: 065
  8. DONNATAL [Concomitant]
     Dosage: UNK, UNKNOWN
     Route: 065

REACTIONS (4)
  - EUPHORIC MOOD [None]
  - FEELING ABNORMAL [None]
  - SUICIDAL IDEATION [None]
  - VICTIM OF SEXUAL ABUSE [None]
